FAERS Safety Report 4335511-0 (Version None)
Quarter: 2004Q2

REPORT INFORMATION
  Report Type: 
  Country: None (occurrence: None)
  Receive Date: 20040406
  Receipt Date: 20040325
  Transmission Date: 20050107
  Serious: Yes (Death, Hospitalization)
  Sender: FDA-Public Use
  Company Number: HQWYE717504NOV03

PATIENT
  Age: 73 Year
  Sex: Male
  Weight: 85.5 kg

DRUGS (11)
  1. MYLOTARG [Suspect]
     Indication: ACUTE MYELOID LEUKAEMIA
     Dosage: 18 MG 1X PER 1 DAY, INTRAVENOUS
     Route: 042
     Dates: start: 20030930, end: 20030930
  2. TYLENOL [Concomitant]
  3. LANOXIN [Concomitant]
  4. XALATAN [Concomitant]
  5. SIMVASTATIN [Concomitant]
  6. FLOMAX [Concomitant]
  7. TIMOLOL MALEATE [Concomitant]
  8. VICODIN [Concomitant]
  9. BENADRYL [Concomitant]
  10. METHYLPREDNISOLONE [Concomitant]
  11. MEROPENEM (MEROPENEM) [Concomitant]

REACTIONS (4)
  - ACUTE MYELOID LEUKAEMIA [None]
  - FUNGAL INFECTION [None]
  - HEPATIC INFECTION [None]
  - MALIGNANT NEOPLASM PROGRESSION [None]
